FAERS Safety Report 7232582-9 (Version None)
Quarter: 2011Q1

REPORT INFORMATION
  Report Type: 
  Country: None (occurrence: None)
  Receive Date: 20110119
  Receipt Date: 20110110
  Transmission Date: 20110831
  Serious: Yes (Hospitalization, Disabling, Other)
  Sender: FDA-Public Use
  Company Number: US-PFIZER INC-2009314612

PATIENT
  Sex: Male
  Weight: 112 kg

DRUGS (3)
  1. KLONOPIN [Concomitant]
     Indication: ANXIETY
     Dosage: UNK
     Dates: start: 20050101
  2. CHANTIX [Suspect]
     Indication: SMOKING CESSATION THERAPY
     Dosage: 0.5 MG -1 MG STARTER PACK
     Route: 048
     Dates: start: 20090209, end: 20090101
  3. LEXAPRO [Concomitant]
     Indication: DEPRESSION
     Dosage: UNK
     Dates: start: 20050101

REACTIONS (5)
  - INTENTIONAL OVERDOSE [None]
  - AGITATION [None]
  - DEPRESSION [None]
  - SUICIDE ATTEMPT [None]
  - ANGER [None]
